FAERS Safety Report 4653108-X (Version None)
Quarter: 2005Q2

REPORT INFORMATION
  Report Type: 
  Country: None (occurrence: None)
  Receive Date: 20050502
  Receipt Date: 20050502
  Transmission Date: 20051028
  Serious: Yes (Life-Threatening, Hospitalization)
  Sender: FDA-Public Use
  Company Number: None

PATIENT
  Age: 62 Year
  Sex: Male
  Weight: 65.7716 kg

DRUGS (2)
  1. SOLUCORTEF  100MG  PFIZER [Suspect]
     Indication: CHEMOTHERAPY
     Dosage: 100MG  IV
     Route: 042
     Dates: start: 20050124, end: 20050321
  2. SOLUCORTEF  100MG  PFIZER [Suspect]
     Indication: PREMEDICATION
     Dosage: 100MG  IV
     Route: 042
     Dates: start: 20050124, end: 20050321

REACTIONS (2)
  - HAEMATEMESIS [None]
  - PLATELET COUNT DECREASED [None]
